FAERS Safety Report 9748731 (Version 2)
Quarter: 2013Q4

REPORT INFORMATION
  Report Type: Report from Study
  Country: MX (occurrence: MX)
  Receive Date: 20131212
  Receipt Date: 20131212
  Transmission Date: 20140711
  Serious: Yes (Death)
  Sender: FDA-Public Use
  Company Number: PHHY2012MX057886

PATIENT
  Age: 68 Year
  Sex: Male

DRUGS (4)
  1. TEGRETOL [Suspect]
     Indication: CONVULSION
     Dosage: 3 DF,3 TABLETS (400 MG) PER DAY
     Route: 048
  2. BEZAFIBRATE [Concomitant]
     Indication: HYPERTENSION
     Dosage: 2 DF, PER DAY
     Route: 048
  3. ENALAPRIL [Concomitant]
     Indication: HYPERTENSION
     Dosage: 2 DFPER DAY
     Route: 048
  4. CHLOROTHIAZIDE [Concomitant]
     Indication: HYPERTENSION
     Dosage: 1 DF, UNK
     Route: 048

REACTIONS (2)
  - Death [Fatal]
  - Convulsion [Not Recovered/Not Resolved]
